FAERS Safety Report 26197238 (Version 1)
Quarter: 2025Q4

REPORT INFORMATION
  Report Type: Spontaneous
  Country: EU (occurrence: EU)
  Receive Date: 20251224
  Receipt Date: 20251224
  Transmission Date: 20260117
  Serious: Yes (Hospitalization)
  Sender: SANDOZ
  Company Number: None

PATIENT
  Age: 43 Year
  Sex: Female

DRUGS (6)
  1. HYRIMOZ [Suspect]
     Active Substance: ADALIMUMAB-ADAZ
     Indication: Psoriatic arthropathy
     Dosage: 40MG EVERY 2 WEEKS
     Dates: start: 20190927
  2. HYRIMOZ [Suspect]
     Active Substance: ADALIMUMAB-ADAZ
  3. HYRIMOZ [Suspect]
     Active Substance: ADALIMUMAB-ADAZ
  4. BISOPROLOL FUMARATE\PERINDOPRIL ARGININE [Concomitant]
     Active Substance: BISOPROLOL FUMARATE\PERINDOPRIL ARGININE
     Indication: Hypertension
     Dosage: 5 MG/5 MG PL?VELE DENGTOS TABLET?S, 1 TABLET PER DAY
  5. MELOXICAM [Concomitant]
     Active Substance: MELOXICAM
     Indication: Psoriatic arthropathy
     Dosage: 15MG PER DAY
     Dates: start: 20240830
  6. ROSUVASTATIN CALCIUM [Concomitant]
     Active Substance: ROSUVASTATIN CALCIUM
     Indication: Dyslipidaemia
     Dosage: 10MG PER DAY
     Dates: start: 20250124

REACTIONS (2)
  - Skin erosion [Not Recovered/Not Resolved]
  - Candida infection [Not Recovered/Not Resolved]

NARRATIVE: CASE EVENT DATE: 20251017
